FAERS Safety Report 18437388 (Version 5)
Quarter: 2023Q4

REPORT INFORMATION
  Report Type: Report from Study
  Country: US (occurrence: US)
  Receive Date: 20201028
  Receipt Date: 20231018
  Transmission Date: 20240110
  Serious: Yes (Other)
  Sender: FDA-Public Use
  Company Number: US-TAKEDA-US202034455

PATIENT
  Sex: Female

DRUGS (2)
  1. HUMAN IMMUNOGLOBULIN G [Suspect]
     Active Substance: HUMAN IMMUNOGLOBULIN G
     Indication: Immunodeficiency common variable
     Dosage: UNK
     Route: 042
  2. BENADRYL [Suspect]
     Active Substance: DIPHENHYDRAMINE HYDROCHLORIDE
     Indication: Product used for unknown indication
     Dosage: UNK
     Route: 065

REACTIONS (12)
  - COVID-19 [Recovered/Resolved]
  - Thyroid disorder [Unknown]
  - Emotional disorder [Unknown]
  - Poor quality sleep [Unknown]
  - Thyroid hormones increased [Unknown]
  - Dermatitis atopic [Unknown]
  - Tinnitus [Unknown]
  - Restless legs syndrome [Unknown]
  - Fatigue [Unknown]
  - Sinusitis [Unknown]
  - Feeling abnormal [Unknown]
  - Product dose omission issue [Unknown]
